FAERS Safety Report 10932787 (Version 1)
Quarter: 2015Q1

REPORT INFORMATION
  Report Type: Spontaneous
  Country: US (occurrence: None)
  Receive Date: 20150319
  Receipt Date: 20150319
  Transmission Date: 20150721
  Serious: Yes (Disabling, Other)
  Sender: FDA-Public Use
  Company Number: None

PATIENT
  Age: 58 Year
  Sex: Female
  Weight: 180 kg

DRUGS (17)
  1. CIPROFLOXACIN HCL [Suspect]
     Active Substance: CIPROFLOXACIN HYDROCHLORIDE
     Indication: URINARY TRACT INFECTION
     Dosage: 6 TABS 1 TAB 2X/DAY MOUTH
     Route: 048
     Dates: start: 20141017, end: 20141018
  2. LEVOTHYROXINE [Concomitant]
     Active Substance: LEVOTHYROXINE
  3. CYCLOBENZAPRINE [Concomitant]
     Active Substance: CYCLOBENZAPRINE
  4. GLUCOSAMINE [Concomitant]
     Active Substance: GLUCOSAMINE
  5. OLIVE LEAF EXTRACT [Concomitant]
  6. GARLIC. [Concomitant]
     Active Substance: GARLIC
  7. ZINC [Concomitant]
     Active Substance: ZINC\ZINC CHLORIDE
  8. OIL OF OREGANO [Concomitant]
  9. CALCIUM [Concomitant]
     Active Substance: CALCIUM
  10. LUTEIN [Concomitant]
     Active Substance: LUTEIN
  11. UBIQUINOL [Concomitant]
  12. MAGNESIUM [Concomitant]
     Active Substance: MAGNESIUM
  13. GLUTATHIONE [Concomitant]
     Active Substance: GLUTATHIONE
  14. POTASSIUM [Concomitant]
     Active Substance: POTASSIUM
  15. LOSARTAN POTASSIUM. [Concomitant]
     Active Substance: LOSARTAN POTASSIUM
  16. LIPOSOMAL VIT C [Concomitant]
  17. LIQUID VIT D3 [Concomitant]

REACTIONS (3)
  - Abasia [None]
  - Dysstasia [None]
  - Thinking abnormal [None]

NARRATIVE: CASE EVENT DATE: 20141018
